FAERS Safety Report 9777119 (Version 2)
Quarter: 2014Q1

REPORT INFORMATION
  Report Type: Report from Study
  Country: FR (occurrence: FR)
  Receive Date: 20131221
  Receipt Date: 20140130
  Transmission Date: 20141002
  Serious: Yes (Hospitalization)
  Sender: FDA-Public Use
  Company Number: FR-ROCHE-1321474

PATIENT
  Sex: Female

DRUGS (6)
  1. RITUXIMAB [Suspect]
     Indication: RHEUMATOID ARTHRITIS
     Route: 041
     Dates: start: 20080410
  2. HYDROXYCHLOROQUINE [Concomitant]
  3. ROACTEMRA [Concomitant]
     Indication: RHEUMATOID ARTHRITIS
     Route: 065
     Dates: start: 20110330
  4. METHYLPREDNISOLONE [Concomitant]
     Route: 065
  5. PARACETAMOL [Concomitant]
  6. CORTANCYL [Concomitant]
     Route: 065

REACTIONS (7)
  - Skin ulcer [Recovered/Resolved]
  - Goitre [Recovered/Resolved]
  - Rectal haemorrhage [Not Recovered/Not Resolved]
  - Infusion related reaction [Recovered/Resolved]
  - Hyperthyroidism [Not Recovered/Not Resolved]
  - Bursitis [Not Recovered/Not Resolved]
  - Rotator cuff syndrome [Not Recovered/Not Resolved]
